FAERS Safety Report 14670363 (Version 2)
Quarter: 2018Q2

REPORT INFORMATION
  Report Type: Report from Study
  Country: DE (occurrence: DE)
  Receive Date: 20180322
  Receipt Date: 20180417
  Transmission Date: 20180711
  Serious: Yes (Hospitalization)
  Sender: FDA-Public Use
  Company Number: DE-PFIZER INC-2018119861

PATIENT
  Age: 64 Year
  Sex: Female

DRUGS (5)
  1. VITAMIN D3 [Concomitant]
     Active Substance: CHOLECALCIFEROL
     Dosage: UNK
  2. MORPHINE SULFATE. [Suspect]
     Active Substance: MORPHINE SULFATE
     Dosage: UNK
  3. TERIPARATIDE [Suspect]
     Active Substance: TERIPARATIDE
     Indication: OSTEOPOROSIS
     Dosage: 1 DF, DAILY
     Route: 058
     Dates: start: 20171018, end: 20180206
  4. TERIPARATIDE [Suspect]
     Active Substance: TERIPARATIDE
     Dosage: 1 DF, DAILY
     Route: 058
     Dates: start: 20180227
  5. HYDROMORPHONE [Concomitant]
     Active Substance: HYDROMORPHONE
     Dosage: 2 MG, UNK

REACTIONS (5)
  - Vomiting [Recovering/Resolving]
  - Paraesthesia [Unknown]
  - Nausea [Not Recovered/Not Resolved]
  - Blood test abnormal [Recovered/Resolved]
  - Constipation [Recovering/Resolving]
